FAERS Safety Report 24651107 (Version 1)
Quarter: 2024Q4

REPORT INFORMATION
  Report Type: Spontaneous
  Country: AR (occurrence: AR)
  Receive Date: 20241122
  Receipt Date: 20241122
  Transmission Date: 20250114
  Serious: Yes (Other)
  Sender: AMGEN
  Company Number: AR-PFIZER INC-202400302063

PATIENT
  Age: 77 Year
  Sex: Male
  Weight: 50 kg

DRUGS (1)
  1. ENBREL [Suspect]
     Active Substance: ETANERCEPT
     Indication: Rheumatoid arthritis
     Dosage: 50 MG, WEEKLY
     Route: 065
     Dates: start: 20190419

REACTIONS (2)
  - Skin graft [Unknown]
  - Muscle atrophy [Unknown]
